FAERS Safety Report 25441356 (Version 1)
Quarter: 2025Q2

REPORT INFORMATION
  Report Type: Spontaneous
  Country: JP (occurrence: JP)
  Receive Date: 20250616
  Receipt Date: 20250616
  Transmission Date: 20250717
  Serious: Yes (Other)
  Sender: INTERCHEM
  Company Number: JP-HQ SPECIALTY-JP-2025INT000041

PATIENT
  Age: 76 Year
  Sex: Female

DRUGS (1)
  1. DEXMEDETOMIDINE HYDROCHLORIDE [Suspect]
     Active Substance: DEXMEDETOMIDINE HYDROCHLORIDE
     Indication: Sedative therapy
     Dosage: 40 MILLILITER, QH
     Route: 065

REACTIONS (1)
  - Arteriospasm coronary [Recovered/Resolved]
